FAERS Safety Report 7012562-9 (Version None)
Quarter: 2010Q3

REPORT INFORMATION
  Report Type: 
  Country: None (occurrence: None)
  Receive Date: 20100924
  Receipt Date: 20100913
  Transmission Date: 20110219
  Serious: Yes (Other)
  Sender: FDA-Public Use
  Company Number: PHEH2007US11294

PATIENT
  Sex: Female

DRUGS (13)
  1. AREDIA [Suspect]
     Indication: METASTASES TO BONE
  2. ZOMETA [Suspect]
     Indication: METASTASES TO BONE
  3. FEMARA [Suspect]
  4. PAMIDRONATE DISODIUM [Suspect]
     Dosage: UNK, UNK
  5. XELODA [Suspect]
  6. TAXOTERE [Suspect]
  7. EPIRUBICIN [Suspect]
  8. CYTOXAN [Suspect]
  9. FASLODEX [Concomitant]
  10. ACTIVASE [Concomitant]
  11. ZOLOFT [Concomitant]
  12. DILAUDID [Concomitant]
  13. DARVOCET-N 100 [Concomitant]

REACTIONS (45)
  - ANHEDONIA [None]
  - ANXIETY [None]
  - AORTIC ANEURYSM [None]
  - ARTHRALGIA [None]
  - BLOOD GLUCOSE INCREASED [None]
  - BREAST CANCER METASTATIC [None]
  - CANDIDIASIS [None]
  - CHEST PAIN [None]
  - CONTUSION [None]
  - DECREASED INTEREST [None]
  - DEFORMITY [None]
  - DEHYDRATION [None]
  - DIARRHOEA [None]
  - DISCOMFORT [None]
  - DRUG INTOLERANCE [None]
  - DYSMORPHISM [None]
  - EMOTIONAL DISTRESS [None]
  - EMPHYSEMA [None]
  - FACIAL PAIN [None]
  - FAILURE TO THRIVE [None]
  - HEAD AND NECK CANCER [None]
  - HEADACHE [None]
  - HYPERHIDROSIS [None]
  - HYPOPHAGIA [None]
  - HYPOTENSION [None]
  - LIFE EXPECTANCY SHORTENED [None]
  - LYMPHADENOPATHY MEDIASTINAL [None]
  - MASS [None]
  - METASTASES TO BONE [None]
  - METASTASES TO LUNG [None]
  - NAUSEA [None]
  - NEUROPATHY PERIPHERAL [None]
  - ORAL TORUS [None]
  - OROPHARYNGEAL PAIN [None]
  - OSTEONECROSIS OF JAW [None]
  - OVERDOSE [None]
  - PAIN [None]
  - PALATAL DISORDER [None]
  - RASH [None]
  - RHINORRHOEA [None]
  - SPINAL OSTEOARTHRITIS [None]
  - SUPERIOR VENA CAVAL OCCLUSION [None]
  - SWELLING FACE [None]
  - VOMITING [None]
  - WEIGHT DECREASED [None]
